FAERS Safety Report 8501033-6 (Version None)
Quarter: 2012Q3

REPORT INFORMATION
  Report Type: 
  Country: None (occurrence: None)
  Receive Date: 20120710
  Receipt Date: 20120630
  Transmission Date: 20120928
  Serious: Yes (Other)
  Sender: FDA-Public Use
  Company Number: US-VERTEX PHARMACEUTICALS INC.-AE-2012-008617

PATIENT
  Sex: Female
  Weight: 78.088 kg

DRUGS (10)
  1. INCIVEK [Suspect]
     Indication: HEPATITIS C
     Route: 048
     Dates: start: 20120606, end: 20120628
  2. VITAMIN D [Concomitant]
     Route: 048
  3. RIBASPHERE [Concomitant]
     Indication: HEPATITIS C
     Route: 048
     Dates: start: 20120606, end: 20120628
  4. DILAUDID [Concomitant]
     Indication: PAIN
     Route: 048
  5. ALBUTEROL [Concomitant]
     Indication: COUGH
  6. HYDROXYZINE HCL [Concomitant]
     Indication: PRURITUS
     Route: 048
  7. PEGASYS [Concomitant]
     Indication: HEPATITIS C
     Route: 058
     Dates: start: 20120606, end: 20120628
  8. HYDROCODONE BITARTRATE AND ACETAMINOPHEN [Concomitant]
     Indication: PAIN
     Route: 048
  9. ATIVAN [Concomitant]
     Indication: ANXIETY
     Route: 048
  10. DIOVAN [Concomitant]
     Indication: BLOOD PRESSURE

REACTIONS (24)
  - PYREXIA [None]
  - CHILLS [None]
  - BONE PAIN [None]
  - ARTHRALGIA [None]
  - HYPERAESTHESIA [None]
  - HYPOAESTHESIA [None]
  - ASTHENIA [None]
  - BLINDNESS [None]
  - FEELING COLD [None]
  - HYPERHIDROSIS [None]
  - THROAT IRRITATION [None]
  - MALAISE [None]
  - VOMITING [None]
  - DECREASED APPETITE [None]
  - TOOTH ABSCESS [None]
  - TONGUE ULCERATION [None]
  - NAUSEA [None]
  - GAIT DISTURBANCE [None]
  - EYE PAIN [None]
  - PAIN IN EXTREMITY [None]
  - PARAESTHESIA [None]
  - MIGRAINE [None]
  - HAEMATOCHEZIA [None]
  - ANORECTAL DISCOMFORT [None]
